FAERS Safety Report 7548515-1 (Version None)
Quarter: 2011Q2

REPORT INFORMATION
  Report Type: 
  Country: None (occurrence: None)
  Receive Date: 20110615
  Receipt Date: 20110531
  Transmission Date: 20111010
  Serious: Yes (Other)
  Sender: FDA-Public Use
  Company Number: CA-JNJFOC-20110604292

PATIENT
  Sex: Female
  Weight: 83 kg

DRUGS (7)
  1. COUMADIN [Concomitant]
  2. TYLENOL-500 [Concomitant]
     Indication: PREMEDICATION
     Route: 048
  3. REMICADE [Suspect]
     Dosage: INFUSION # 25
     Route: 042
     Dates: start: 20110531
  4. ANTIDEPRESSANT [Concomitant]
  5. REMICADE [Suspect]
     Indication: CROHN'S DISEASE
     Dosage: INFUSION # 25
     Route: 042
  6. ASPIRIN [Concomitant]
  7. HYDROCORTISONE [Concomitant]
     Indication: PREMEDICATION
     Route: 042

REACTIONS (7)
  - PALPITATIONS [None]
  - ERYTHEMA [None]
  - INFUSION RELATED REACTION [None]
  - ANXIETY [None]
  - FEELING HOT [None]
  - HEADACHE [None]
  - COUGH [None]
